FAERS Safety Report 6772048-3 (Version None)
Quarter: 2010Q2

REPORT INFORMATION
  Report Type: 
  Country: None (occurrence: None)
  Receive Date: 20100616
  Receipt Date: 20100614
  Transmission Date: 20101027
  Serious: Yes (Other)
  Sender: FDA-Public Use
  Company Number: A0854154A

PATIENT
  Sex: Female

DRUGS (2)
  1. CEFTIN [Suspect]
     Indication: EAR INFECTION
     Dosage: 2ML TWICE PER DAY
     Route: 048
     Dates: start: 20100408
  2. NO CONCURRENT MEDICATION [Concomitant]

REACTIONS (3)
  - CHOKING [None]
  - PRODUCT QUALITY ISSUE [None]
  - WRONG TECHNIQUE IN DRUG USAGE PROCESS [None]
